FAERS Safety Report 20517644 (Version 3)
Quarter: 2022Q1

REPORT INFORMATION
  Report Type: Report from Study
  Country: KR (occurrence: KR)
  Receive Date: 20220225
  Receipt Date: 20220310
  Transmission Date: 20220423
  Serious: Yes (Life-Threatening)
  Sender: FDA-Public Use
  Company Number: KR-KOREA IPSEN Pharma-2021-21787

PATIENT
  Age: 61 Year
  Sex: Female

DRUGS (5)
  1. CABOZANTINIB [Suspect]
     Active Substance: CABOZANTINIB
     Indication: Hepatocellular carcinoma
     Dosage: 40 MG, QD
     Route: 048
     Dates: start: 20210624, end: 20210819
  2. CABOZANTINIB [Suspect]
     Active Substance: CABOZANTINIB
     Dosage: 40 MG, TWO DAYS ON/ONE DAY OFF
     Route: 048
     Dates: start: 20210920
  3. VIREAD [Concomitant]
     Active Substance: TENOFOVIR DISOPROXIL FUMARATE
     Indication: Hepatitis B
     Dosage: 300 MG, QD (ONGOING)
     Route: 048
     Dates: start: 20210318
  4. Godex [Concomitant]
     Indication: Prophylaxis
     Dosage: 2 CAPSULES, TWICE PER DAY (ONGOING)
     Route: 048
     Dates: start: 20210722
  5. URSODIOL [Concomitant]
     Active Substance: URSODIOL
     Indication: Prophylaxis
     Dosage: 1 TABLET, 3 TIMES PER DAY (STRENGTH: 200 MG) (ONGOING)
     Route: 048
     Dates: start: 20210506

REACTIONS (3)
  - Thrombocytopenia [Not Recovered/Not Resolved]
  - Constipation [Recovering/Resolving]
  - Decreased appetite [Recovering/Resolving]

NARRATIVE: CASE EVENT DATE: 20210722
